FAERS Safety Report 6837934-4 (Version None)
Quarter: 2010Q3

REPORT INFORMATION
  Report Type: 
  Country: None (occurrence: None)
  Receive Date: 20100713
  Receipt Date: 20070429
  Transmission Date: 20110219
  Serious: No
  Sender: FDA-Public Use
  Company Number: US-PFIZER INC-2007035267

PATIENT
  Sex: Male
  Weight: 142.88 kg

DRUGS (5)
  1. CHANTIX [Suspect]
     Indication: SMOKING CESSATION THERAPY
     Dates: start: 20070418
  2. METFORMIN [Concomitant]
  3. LISINOPRIL [Concomitant]
  4. METOPROLOL [Concomitant]
  5. ZETIA [Concomitant]

REACTIONS (2)
  - ARTHRALGIA [None]
  - OEDEMA PERIPHERAL [None]
